FAERS Safety Report 5182979-6 (Version None)
Quarter: 2006Q4

REPORT INFORMATION
  Report Type: 
  Country: None (occurrence: None)
  Receive Date: 20061212
  Receipt Date: 20061129
  Transmission Date: 20070319
  Serious: Yes (Hospitalization)
  Sender: FDA-Public Use
  Company Number: 2006SP007482

PATIENT
  Age: 52 Year
  Sex: Female

DRUGS (12)
  1. PEG-INTRON [Suspect]
     Indication: HEPATITIS B
     Dosage: SC
     Route: 058
     Dates: start: 20051103, end: 20060928
  2. PEG-INTRON [Suspect]
     Indication: HEPATITIS C
     Dosage: SC
     Route: 058
     Dates: start: 20051103, end: 20060928
  3. RIBAVIRIN [Suspect]
     Indication: HEPATITIS B
     Dosage: PO
     Route: 048
     Dates: start: 20051103, end: 20060928
  4. RIBAVIRIN [Suspect]
     Indication: HEPATITIS C
     Dosage: PO
     Route: 048
     Dates: start: 20051103, end: 20060928
  5. ADVAIR DISKUS 100/50 [Concomitant]
  6. ALEVE [Concomitant]
  7. BUSPIRONE HCL [Concomitant]
  8. CYMBALTA [Concomitant]
  9. NEXIUM [Concomitant]
  10. SINGULAIR [Concomitant]
  11. TRAMADOL HCL [Concomitant]
  12. XANAX [Concomitant]

REACTIONS (11)
  - AGGRESSION [None]
  - AMENORRHOEA [None]
  - ANXIETY [None]
  - DEHYDRATION [None]
  - DELIRIUM [None]
  - HOT FLUSH [None]
  - IMMUNODEFICIENCY [None]
  - PNEUMONIA [None]
  - PYREXIA [None]
  - SUICIDE ATTEMPT [None]
  - TUBERCULOSIS [None]
